FAERS Safety Report 7725343-5 (Version None)
Quarter: 2011Q3

REPORT INFORMATION
  Report Type: 
  Country: None (occurrence: None)
  Receive Date: 20110829
  Receipt Date: 20110815
  Transmission Date: 20111222
  Serious: Yes (Death)
  Sender: FDA-Public Use
  Company Number: 11-061-01

PATIENT

DRUGS (4)
  1. VENLAFAXINE HYDROCHLORIDE [Concomitant]
  2. OXAZEPAM [Concomitant]
  3. AMLODIPINE [Suspect]
     Indication: OVERDOSE
  4. CITALOPRAM HYDROBROMIDE [Concomitant]

REACTIONS (2)
  - DRUG LEVEL INCREASED [None]
  - OVERDOSE [None]
